FAERS Safety Report 7033058-4 (Version None)
Quarter: 2010Q4

REPORT INFORMATION
  Report Type: 
  Country: None (occurrence: None)
  Receive Date: 20101004
  Receipt Date: 20100924
  Transmission Date: 20110411
  Serious: Yes (Hospitalization)
  Sender: FDA-Public Use
  Company Number: 2010MA003045

PATIENT
  Age: 69 Year
  Sex: Female

DRUGS (5)
  1. IBUPROFEN [Suspect]
     Indication: ARTHRITIS
     Dosage: 600 MG;TIID;PO
     Route: 048
     Dates: start: 19860101, end: 20040702
  2. VIOXX [Suspect]
     Indication: ARTHRITIS
     Dosage: 25 MG;QD;PO
     Route: 048
     Dates: start: 20040622, end: 20040702
  3. LIPITOR [Concomitant]
  4. PARACETAMOL [Concomitant]
  5. PREV MEDS [Concomitant]

REACTIONS (6)
  - DYSPNOEA [None]
  - FALL [None]
  - GASTROINTESTINAL ULCER [None]
  - HAEMOGLOBIN DECREASED [None]
  - OESOPHAGITIS [None]
  - SYNCOPE [None]
